FAERS Safety Report 21585277 (Version 1)
Quarter: 2022Q4

REPORT INFORMATION
  Report Type: Report from Study
  Country: IT (occurrence: IT)
  Receive Date: 20221111
  Receipt Date: 20221111
  Transmission Date: 20230113
  Serious: Yes (Hospitalization, Other)
  Sender: FDA-Public Use
  Company Number: None

PATIENT
  Age: 3 Year
  Sex: Female
  Weight: 14 kg

DRUGS (6)
  1. METHOTREXATE (METHOTREXATE SODIUM) [Suspect]
     Active Substance: METHOTREXATE SODIUM
     Indication: Acute lymphocytic leukaemia
     Dosage: 12 MG ON 12/09 AND 19/09/22, DURATION: 7 DAYS
     Route: 065
     Dates: start: 20220912, end: 20220919
  2. VINCRISTINE SULFATE [Suspect]
     Active Substance: VINCRISTINE SULFATE
     Indication: Acute lymphocytic leukaemia
     Dosage: 0.80 MG / DAY ON 08/08, 16/08, 22/08 AND 29/08/22, DURATION: 21 DAYS
     Route: 065
     Dates: start: 20220808, end: 20220829
  3. CYTARABINE [Suspect]
     Active Substance: CYTARABINE
     Indication: Acute lymphocytic leukaemia
     Dosage: 41 MG / DAY FROM DAY 12/09 TO DAY 15/09/22 41 MG / DAY FROM DAY 19/09 TO DAY 22/09/22, DURATION: 10
     Route: 065
     Dates: start: 20220912, end: 20220922
  4. THIOGUANINE ANHYDROUS [Suspect]
     Active Substance: THIOGUANINE ANHYDROUS
     Indication: Acute lymphocytic leukaemia
     Dosage: 40 MILLIGRAM DAILY; 40 MG / DAY, DURATION: 15 DAYS
     Route: 065
     Dates: start: 20220909, end: 20220924
  5. CYCLOPHOSPHAMIDE [Suspect]
     Active Substance: CYCLOPHOSPHAMIDE
     Indication: Acute lymphocytic leukaemia
     Dosage: 550 MG
     Route: 065
     Dates: start: 20220909, end: 20220909
  6. ONCASPAR [Suspect]
     Active Substance: PEGASPARGASE
     Indication: Acute lymphocytic leukaemia
     Dosage: 1380 U/I
     Route: 065
     Dates: start: 20220808, end: 20220808

REACTIONS (5)
  - Leukopenia [Not Recovered/Not Resolved]
  - Pancytopenia [Not Recovered/Not Resolved]
  - Febrile neutropenia [Recovered/Resolved]
  - Constipation [Recovered/Resolved]
  - Anaemia [Not Recovered/Not Resolved]

NARRATIVE: CASE EVENT DATE: 20220829
